FAERS Safety Report 4730849-7 (Version None)
Quarter: 2005Q3

REPORT INFORMATION
  Report Type: 
  Country: None (occurrence: None)
  Receive Date: 20050719
  Receipt Date: 20040608
  Transmission Date: 20060218
  Serious: Yes (Hospitalization)
  Sender: FDA-Public Use
  Company Number: 191724

PATIENT
  Age: 18 Year
  Sex: Male
  Weight: 87.0906 kg

DRUGS (1)
  1. AVONEX [Suspect]
     Indication: MULTIPLE SCLEROSIS
     Dosage: 30 UG;QW;IM
     Route: 030

REACTIONS (5)
  - COGNITIVE DISORDER [None]
  - FAECES DISCOLOURED [None]
  - HERPES ZOSTER [None]
  - MULTIPLE SCLEROSIS RELAPSE [None]
  - PHARYNGITIS STREPTOCOCCAL [None]
